FAERS Safety Report 25699166 (Version 2)
Quarter: 2025Q4

REPORT INFORMATION
  Report Type: Report from Study
  Country: CA (occurrence: None)
  Receive Date: 20250819
  Receipt Date: 20251205
  Transmission Date: 20260118
  Serious: No
  Sender: UCB
  Company Number: CA-UCBSA-2025050458

PATIENT

DRUGS (1)
  1. CERTOLIZUMAB PEGOL [Suspect]
     Active Substance: CERTOLIZUMAB PEGOL
     Indication: Ankylosing spondylitis
     Dosage: 200 MILLIGRAM, EV 2 WEEKS(QOW)

REACTIONS (2)
  - BASDAI score increased [Recovering/Resolving]
  - BASFI score increased [Recovering/Resolving]
